FAERS Safety Report 23019652 (Version 2)
Quarter: 2023Q4

REPORT INFORMATION
  Report Type: Spontaneous
  Country: US (occurrence: US)
  Receive Date: 20231003
  Receipt Date: 20231028
  Transmission Date: 20240110
  Serious: Yes (Hospitalization, Other)
  Sender: FDA-Public Use
  Company Number: US-drreddys-LIT/USA/23/0178708

PATIENT
  Age: 58 Year
  Sex: Female

DRUGS (19)
  1. FLUOXETINE [Interacting]
     Active Substance: FLUOXETINE HYDROCHLORIDE
     Indication: Anxiety
  2. FLUOXETINE [Interacting]
     Active Substance: FLUOXETINE HYDROCHLORIDE
     Indication: Depression
  3. PREGABALIN [Interacting]
     Active Substance: PREGABALIN
     Indication: Pain
  4. SERTRALINE [Interacting]
     Active Substance: SERTRALINE HYDROCHLORIDE
     Indication: Anxiety
  5. SERTRALINE [Interacting]
     Active Substance: SERTRALINE HYDROCHLORIDE
     Indication: Depression
  6. HYDROCODONE [Interacting]
     Active Substance: HYDROCODONE
     Indication: Pain
     Dosage: 10 - 325MG UP TO FOUR TIMES A DAY
  7. HYDROCODONE [Interacting]
     Active Substance: HYDROCODONE
     Dosage: ADDITIONAL DOSES
  8. HYDROCODONE [Interacting]
     Active Substance: HYDROCODONE
     Dosage: RESTARTED
  9. GABAPENTIN [Interacting]
     Active Substance: GABAPENTIN
     Indication: Pain
  10. GABAPENTIN [Interacting]
     Active Substance: GABAPENTIN
     Dosage: 10MG DAILY
  11. GABAPENTIN [Interacting]
     Active Substance: GABAPENTIN
     Dosage: RESTARTED
  12. CYCLOBENZAPRINE [Interacting]
     Active Substance: CYCLOBENZAPRINE
     Indication: Pain
     Dosage: 10MG DAILY
  13. CYCLOBENZAPRINE [Interacting]
     Active Substance: CYCLOBENZAPRINE
     Dosage: ADDITIONAL DOSES
  14. CYCLOBENZAPRINE [Interacting]
     Active Substance: CYCLOBENZAPRINE
     Dosage: RESTARTED
  15. TIZANIDINE HYDROCHLORIDE [Concomitant]
     Active Substance: TIZANIDINE HYDROCHLORIDE
     Indication: Pain
  16. DIAZEPAM [Concomitant]
     Active Substance: DIAZEPAM
     Indication: Pain
     Route: 042
  17. HYDROMORPHONE [Concomitant]
     Active Substance: HYDROMORPHONE
     Indication: Pain
  18. TRIAMCINOLONE [Concomitant]
     Active Substance: TRIAMCINOLONE
     Indication: Product used for unknown indication
     Dosage: 1 ML OF 40 MG/ML TRIAMCINOLONE
  19. BUPIVACAINE [Concomitant]
     Active Substance: BUPIVACAINE
     Indication: Product used for unknown indication
     Dosage: 5 ML OF 0.25 PERCENT BUPIVACAINE WAS INJECTED INTO THE JOINT AND 2 ML INTO THE PERIARTICULAR SPACE.

REACTIONS (2)
  - Drug interaction [Unknown]
  - Serotonin syndrome [Unknown]
